FAERS Safety Report 5702423-7 (Version None)
Quarter: 2008Q2

REPORT INFORMATION
  Report Type: 
  Country: None (occurrence: None)
  Receive Date: 20080411
  Receipt Date: 20080408
  Transmission Date: 20081010
  Serious: Yes (Hospitalization)
  Sender: FDA-Public Use
  Company Number: JP-BRISTOL-MYERS SQUIBB COMPANY-14055131

PATIENT
  Age: 60 Year
  Sex: Male
  Weight: 50 kg

DRUGS (17)
  1. CISPLATIN [Suspect]
     Indication: PLEURAL MESOTHELIOMA MALIGNANT
     Dosage: REGIMEN 2:(110MG)16JAN08
     Route: 042
     Dates: start: 20071218, end: 20071218
  2. ALIMTA [Suspect]
     Indication: PLEURAL MESOTHELIOMA MALIGNANT
     Route: 042
     Dates: start: 20071218
  3. PANVITAN [Concomitant]
     Dosage: POWDER FORM
     Dates: start: 20071216
  4. CYANOCOBALAMIN [Concomitant]
     Dates: start: 20071210, end: 20071210
  5. OPSO [Concomitant]
     Dates: start: 20071122
  6. NOVAMIN [Concomitant]
     Dates: start: 20071122
  7. GASTER D [Concomitant]
     Dates: start: 20071122
  8. MS CONTIN [Concomitant]
     Dates: start: 20071130, end: 20071225
  9. KYTRIL [Concomitant]
     Dates: start: 20071218, end: 20071218
  10. DEXART [Concomitant]
     Dates: start: 20071218, end: 20071218
  11. DUROTEP [Concomitant]
     Dates: start: 20071225
  12. FOLIC ACID [Concomitant]
  13. VITAMIN B-12 [Concomitant]
  14. DEXAMETHASONE [Concomitant]
  15. MORPHINE [Concomitant]
     Indication: CANCER PAIN
     Dates: start: 20071122
  16. PROCHLORPERAZINE MALEATE [Concomitant]
     Indication: NAUSEA
     Dates: start: 20071122
  17. MORPHINE SULFATE [Concomitant]
     Indication: CANCER PAIN
     Route: 048
     Dates: start: 20071130

REACTIONS (3)
  - ANOREXIA [None]
  - ILEUS PARALYTIC [None]
  - VOMITING [None]
